FAERS Safety Report 4279005-X (Version None)
Quarter: 2004Q1

REPORT INFORMATION
  Report Type: 
  Country: None (occurrence: None)
  Receive Date: 20040121
  Receipt Date: 20040106
  Transmission Date: 20041129
  Serious: Yes (Hospitalization)
  Sender: FDA-Public Use
  Company Number: US_030997816

PATIENT
  Age: 72 Year
  Sex: Female
  Weight: 61 kg

DRUGS (11)
  1. FORTEO [Suspect]
     Indication: OSTEOPOROSIS
     Dosage: 20 UG/DAY
     Dates: start: 20030401
  2. VITAMIN D [Concomitant]
  3. LORATADINE [Concomitant]
  4. COMBIVENT [Concomitant]
  5. SEREVENT [Concomitant]
  6. CENTRUM [Concomitant]
  7. ASPIRIN [Concomitant]
  8. TUMS E-X EXTRA STRENGTH (CALCIUM CARBONATE) [Concomitant]
  9. ALBUTEROL [Concomitant]
  10. FLOVENT [Concomitant]
  11. TOPROL-XL [Concomitant]

REACTIONS (17)
  - ABDOMINAL TENDERNESS [None]
  - ASPARTATE AMINOTRANSFERASE INCREASED [None]
  - BLOOD MAGNESIUM DECREASED [None]
  - CHRONIC OBSTRUCTIVE AIRWAYS DISEASE EXACERBATED [None]
  - DECREASED APPETITE [None]
  - DIZZINESS [None]
  - DRUG INEFFECTIVE [None]
  - FEELING ABNORMAL [None]
  - HEADACHE [None]
  - HYPERTENSION [None]
  - HYPONATRAEMIA [None]
  - MENTAL DISORDER [None]
  - NAUSEA [None]
  - NECK PAIN [None]
  - PHARMACEUTICAL PRODUCT COMPLAINT [None]
  - SOMNOLENCE [None]
  - TREMOR [None]
